FAERS Safety Report 5525253-8 (Version None)
Quarter: 2007Q4

REPORT INFORMATION
  Report Type: 
  Country: None (occurrence: None)
  Receive Date: 20071120
  Receipt Date: 20071113
  Transmission Date: 20080405
  Serious: Yes (Death, Hospitalization, Other)
  Sender: FDA-Public Use
  Company Number: 163-21880-07011284

PATIENT
  Age: 58 Year
  Sex: Male

DRUGS (12)
  1. REVLIMID [Suspect]
     Indication: MULTIPLE MYELOMA
     Dosage: 25 MG, DAILY, ORAL
     Route: 048
     Dates: start: 20070112, end: 20070119
  2. DEXAMETHASONE TAB [Suspect]
     Indication: MULTIPLE MYELOMA
     Dosage: 40 MG, DAY 1-4, ORAL
     Route: 048
     Dates: start: 20070114
  3. TOPROL-XL [Concomitant]
  4. NORVASC [Concomitant]
  5. FOSINOPRIL SODIUM [Concomitant]
  6. NPH PURIFIED PORK ISOPHANE INSULIN [Concomitant]
  7. ASPIRIN [Concomitant]
  8. IV FLUIDS [Concomitant]
  9. PAMIDRONATE (PAMIDRONATE SODIUM) [Concomitant]
  10. COUMADIN [Concomitant]
  11. WARFARIN SODIUM [Concomitant]
  12. ASPIRIN [Concomitant]

REACTIONS (19)
  - ALANINE AMINOTRANSFERASE INCREASED [None]
  - ASPARTATE AMINOTRANSFERASE INCREASED [None]
  - ASTHENIA [None]
  - BILIRUBIN CONJUGATED INCREASED [None]
  - BLOOD ALKALINE PHOSPHATASE INCREASED [None]
  - BLOOD BILIRUBIN INCREASED [None]
  - FATIGUE [None]
  - FEBRILE NEUTROPENIA [None]
  - HAEMANGIOMA OF LIVER [None]
  - HEPATOMEGALY [None]
  - HEPATOTOXICITY [None]
  - HYPERBILIRUBINAEMIA [None]
  - IRON OVERLOAD [None]
  - KLEBSIELLA BACTERAEMIA [None]
  - LIVER DISORDER [None]
  - NUCLEAR MAGNETIC RESONANCE IMAGING ABNORMAL [None]
  - SEPTIC SHOCK [None]
  - STEM CELL TRANSPLANT [None]
  - THROMBOCYTOPENIA [None]
